FAERS Safety Report 12595699 (Version 1)
Quarter: 2016Q3

REPORT INFORMATION
  Report Type: Report from Study
  Country: US (occurrence: US)
  Receive Date: 20160726
  Receipt Date: 20160726
  Transmission Date: 20161109
  Serious: No
  Sender: FDA-Public Use
  Company Number: US-AMGEN-USASL2016022755

PATIENT
  Age: 48 Year
  Sex: Female

DRUGS (3)
  1. KYPROLIS [Suspect]
     Active Substance: CARFILZOMIB
     Indication: PRODUCT USED FOR UNKNOWN INDICATION
     Dosage: UNK UNK, 2 TIMES/WK, 3 WEEKS AND THEN HAD 1 WEEK OFF.
     Route: 065
     Dates: start: 20151221, end: 20160210
  2. DEXAMETHASONE. [Concomitant]
     Active Substance: DEXAMETHASONE
     Dosage: 40 MG, MONDAYS AND THURSDAYS
  3. POMALIDOMIDE [Concomitant]
     Active Substance: POMALIDOMIDE

REACTIONS (3)
  - Gait disturbance [Unknown]
  - Disease progression [Unknown]
  - Chest discomfort [Unknown]
